FAERS Safety Report 6360268-1 (Version None)
Quarter: 2009Q3

REPORT INFORMATION
  Report Type: 
  Country: None (occurrence: None)
  Receive Date: 20090917
  Receipt Date: 20090915
  Transmission Date: 20100115
  Serious: Yes (Hospitalization)
  Sender: FDA-Public Use
  Company Number: US-GENENTECH-288525

PATIENT
  Sex: Male
  Weight: 79.365 kg

DRUGS (8)
  1. BEVACIZUMAB [Suspect]
     Indication: RECTAL CANCER
     Dosage: 370 MG, DAYS 1+15
     Dates: start: 20080409, end: 20080918
  2. FLUOROURACIL [Suspect]
     Indication: RECTAL CANCER
     Dosage: 784 MG, DAYS 1+15
     Dates: start: 20080409, end: 20080918
  3. FLUOROURACIL [Suspect]
     Dosage: 4704 MG, DAYS 1+15
     Dates: start: 20080409, end: 20080918
  4. LEUCOVORIN CALCIUM [Suspect]
     Indication: RECTAL CANCER
     Dosage: 350 MG, DAYS 1+15
     Dates: start: 20080825, end: 20080918
  5. OXALIPLATIN [Suspect]
     Indication: RECTAL CANCER
     Dosage: 166 MG, DAYS 1+15
     Dates: start: 20080825, end: 20080918
  6. COMPAZINE [Concomitant]
     Indication: DRUG USE FOR UNKNOWN INDICATION
     Dosage: 25 MG, PRN
     Dates: start: 20080409
  7. IMODIUM [Concomitant]
     Indication: DRUG USE FOR UNKNOWN INDICATION
     Dosage: UNK
     Dates: start: 20080416
  8. IRON [Concomitant]
     Indication: DRUG USE FOR UNKNOWN INDICATION
     Dosage: UNK
     Dates: start: 20080301

REACTIONS (1)
  - JAUNDICE [None]
